FAERS Safety Report 9217312 (Version 1)
Quarter: 2013Q2

REPORT INFORMATION
  Report Type: Spontaneous
  Country: US (occurrence: US)
  Receive Date: 20130408
  Receipt Date: 20130408
  Transmission Date: 20140414
  Serious: No
  Sender: FDA-Public Use
  Company Number: US-PFIZER INC-2013109414

PATIENT
  Age: 67 Year
  Sex: Female
  Weight: 74.83 kg

DRUGS (7)
  1. LYRICA [Suspect]
     Indication: NEUROPATHY PERIPHERAL
     Dosage: 50 MG, 1X/DAY
     Route: 048
     Dates: start: 2011, end: 2011
  2. GABAPENTIN [Suspect]
     Indication: NEUROPATHY PERIPHERAL
     Dosage: 100 MG, 3X/DAY
     Route: 048
     Dates: start: 2011, end: 2011
  3. GABAPENTIN [Suspect]
     Dosage: 100 MG, 4X/DAY
     Route: 048
     Dates: start: 2011, end: 2011
  4. GABAPENTIN [Suspect]
     Dosage: 100 MG, 3X/DAY
     Route: 048
     Dates: start: 2011
  5. SIMVASTATIN [Concomitant]
     Indication: BLOOD CHOLESTEROL INCREASED
     Dosage: UNK
  6. OMEPRAZOLE [Concomitant]
     Indication: GASTROOESOPHAGEAL REFLUX DISEASE
     Dosage: UNK
  7. FLECTOR [Concomitant]
     Dosage: UNK

REACTIONS (5)
  - Speech disorder [Unknown]
  - Drug ineffective [Unknown]
  - Drug effect incomplete [Unknown]
  - Pain [Unknown]
  - Somnolence [Unknown]
